FAERS Safety Report 24727009 (Version 2)
Quarter: 2025Q1

REPORT INFORMATION
  Report Type: Other
  Country: US (occurrence: US)
  Receive Date: 20241212
  Receipt Date: 20250103
  Transmission Date: 20250409
  Serious: Yes (Hospitalization, Other)
  Sender: NUVO PHARMACEUTICALS
  Company Number: US-Nuvo Pharmaceuticals Inc-2166981

PATIENT
  Age: 55 Year
  Sex: Male

DRUGS (2)
  1. POLYETHYLENE GLYCOL 3350 [Suspect]
     Active Substance: POLYETHYLENE GLYCOL 3350
     Indication: Bowel preparation
  2. OXYGEN [Concomitant]
     Active Substance: OXYGEN

REACTIONS (2)
  - Pulmonary oedema [Recovered/Resolved]
  - Acute respiratory failure [Recovered/Resolved]
